FAERS Safety Report 17886534 (Version 2)
Quarter: 2020Q2

REPORT INFORMATION
  Report Type: Spontaneous
  Country: US (occurrence: US)
  Receive Date: 20200611
  Receipt Date: 20200617
  Transmission Date: 20200714
  Serious: Yes (Other)
  Sender: FDA-Public Use
  Company Number: US-PFIZER INC-2020227960

PATIENT
  Age: 29 Year
  Sex: Male
  Weight: 83.91 kg

DRUGS (1)
  1. VIAGRA [Suspect]
     Active Substance: SILDENAFIL CITRATE
     Indication: ERECTILE DYSFUNCTION
     Dosage: 400 MG
     Route: 048
     Dates: start: 20200610

REACTIONS (2)
  - Accidental overdose [Unknown]
  - Erection increased [Unknown]

NARRATIVE: CASE EVENT DATE: 20200610
